FAERS Safety Report 13536490 (Version 1)
Quarter: 2017Q2

REPORT INFORMATION
  Report Type: Spontaneous
  Country: RO (occurrence: RO)
  Receive Date: 20170511
  Receipt Date: 20170511
  Transmission Date: 20170830
  Serious: Yes (Other)
  Sender: FDA-Public Use
  Company Number: RO-BAYER-2017-088898

PATIENT
  Age: 67 Year
  Sex: Male

DRUGS (1)
  1. NEXAVAR [Suspect]
     Active Substance: SORAFENIB
     Indication: RENAL CELL CARCINOMA
     Dosage: 800 MG, QD (4 CAPSULES A DAY)
     Route: 048
     Dates: start: 201508, end: 201511

REACTIONS (1)
  - Renal cell carcinoma [None]

NARRATIVE: CASE EVENT DATE: 20151204
